FAERS Safety Report 8936252 (Version 4)
Quarter: 2013Q4

REPORT INFORMATION
  Report Type: Report from Study
  Country: IT (occurrence: IT)
  Receive Date: 20121130
  Receipt Date: 20131205
  Transmission Date: 20140711
  Serious: Yes (Other)
  Sender: FDA-Public Use
  Company Number: IT-CELGENEUS-083-21880-12112639

PATIENT
  Age: 72 Year
  Sex: Male

DRUGS (10)
  1. REVLIMID [Suspect]
     Indication: PLASMA CELL MYELOMA
     Dosage: 5 MILLIGRAM
     Route: 048
     Dates: start: 20060520, end: 20120312
  2. REVLIMID [Suspect]
     Route: 048
     Dates: start: 20050723, end: 20060401
  3. REVLIMID [Suspect]
     Route: 048
     Dates: end: 20120404
  4. REVLIMID [Suspect]
     Route: 048
     Dates: start: 20121015
  5. ALKERAN [Suspect]
     Indication: PLASMA CELL MYELOMA
     Route: 065
     Dates: start: 20050723, end: 20060401
  6. DELTACORTENE [Suspect]
     Indication: PLASMA CELL MYELOMA
     Route: 065
     Dates: start: 20050723, end: 20060401
  7. WARFARIN [Concomitant]
     Indication: PRODUCT USED FOR UNKNOWN INDICATION
     Route: 065
     Dates: start: 20120807
  8. OMEPRAZOLE [Concomitant]
     Indication: PRODUCT USED FOR UNKNOWN INDICATION
     Route: 065
  9. METFORMIN [Concomitant]
     Indication: PRODUCT USED FOR UNKNOWN INDICATION
     Route: 065
  10. BICALUTAMIDE [Concomitant]
     Indication: PRODUCT USED FOR UNKNOWN INDICATION
     Route: 065

REACTIONS (1)
  - Basal cell carcinoma [Recovered/Resolved]
